FAERS Safety Report 7265405-2 (Version None)
Quarter: 2011Q1

REPORT INFORMATION
  Report Type: 
  Country: None (occurrence: None)
  Receive Date: 20110131
  Receipt Date: 20110124
  Transmission Date: 20110831
  Serious: Yes (Hospitalization)
  Sender: FDA-Public Use
  Company Number: US-B.I. PHARMACEUTICALS,INC./RIDGEFIELD-2011-BP-00280BP

PATIENT
  Age: 61 Year
  Sex: Female

DRUGS (2)
  1. PRADAXA [Suspect]
     Indication: THROMBOSIS
     Dates: start: 20101224
  2. AVASTIN [Concomitant]
     Indication: OVARIAN CANCER
     Route: 042

REACTIONS (5)
  - HEAD INJURY [None]
  - MICTURITION URGENCY [None]
  - SYNCOPE [None]
  - LOSS OF CONSCIOUSNESS [None]
  - FALL [None]
